FAERS Safety Report 21990308 (Version 1)
Quarter: 2023Q1

REPORT INFORMATION
  Report Type: Spontaneous
  Country: US (occurrence: None)
  Receive Date: 20230213
  Receipt Date: 20230213
  Transmission Date: 20230418
  Serious: No
  Sender: FDA-Public Use
  Company Number: None

PATIENT
  Sex: Female

DRUGS (20)
  1. AMBRISENTAN [Suspect]
     Active Substance: AMBRISENTAN
     Indication: Pulmonary arterial hypertension
     Dosage: FREQUENCY : DAILY;?
     Route: 048
  2. AMITRIPTYLINE HYDROCHLORIDE [Concomitant]
     Active Substance: AMITRIPTYLINE HYDROCHLORIDE
  3. FOLIC ACID [Concomitant]
     Active Substance: FOLIC ACID
  4. LETAIRIS [Concomitant]
     Active Substance: AMBRISENTAN
  5. GABAPENTIN [Concomitant]
     Active Substance: GABAPENTIN
  6. DICLOFENAC SODIUM [Concomitant]
     Active Substance: DICLOFENAC SODIUM
  7. CREON [Concomitant]
     Active Substance: PANCRELIPASE AMYLASE\PANCRELIPASE LIPASE\PANCRELIPASE PROTEASE
  8. ALBUTEROL SULFATE [Concomitant]
     Active Substance: ALBUTEROL SULFATE
  9. FAMOTIDINE [Concomitant]
     Active Substance: FAMOTIDINE
  10. ATORVASTATIN CALCIUM [Concomitant]
     Active Substance: ATORVASTATIN CALCIUM
  11. PANTOPRAZOLE SODIUM [Concomitant]
     Active Substance: PANTOPRAZOLE SODIUM
  12. WELLBUTRIN XL [Concomitant]
     Active Substance: BUPROPION HYDROCHLORIDE
  13. SYNJARDY [Concomitant]
     Active Substance: EMPAGLIFLOZIN\METFORMIN HYDROCHLORIDE
  14. ONDANSETRON HCL [Concomitant]
     Active Substance: ONDANSETRON HYDROCHLORIDE
  15. FUROSEMIDE [Concomitant]
     Active Substance: FUROSEMIDE
  16. POTASSIUM [Concomitant]
     Active Substance: POTASSIUM
  17. GLIMEPIRIDE [Concomitant]
     Active Substance: GLIMEPIRIDE
  18. VITAMIN D [Concomitant]
     Active Substance: VITAMIN D NOS
  19. LORATADINE [Concomitant]
     Active Substance: LORATADINE
  20. TADALAFIL [Concomitant]
     Active Substance: TADALAFIL

REACTIONS (5)
  - Product use issue [None]
  - Dizziness [None]
  - Confusional state [None]
  - Disorientation [None]
  - Malaise [None]
